FAERS Safety Report 9293005 (Version 1)
Quarter: 2013Q1

REPORT INFORMATION
  Report Type: Spontaneous
  Country: US (occurrence: None)
  Receive Date: 20121212
  Receipt Date: 20121212
  Transmission Date: 20140127
  Serious: No
  Sender: FDA-Public Use
  Company Number: 1210USA009911

PATIENT
  Age: 54 Year
  Sex: Male
  Weight: 67.1 kg

DRUGS (3)
  1. PEGINTRON [Suspect]
     Dosage: 1120 MCG/0.5ML, SUBCUTANEOUS
     Route: 058
  2. RIBAPAK [Suspect]
     Dosage: 600/DAY, ORAL
     Route: 048
  3. VICTRELIS [Suspect]
     Route: 048

REACTIONS (2)
  - Rash pruritic [None]
  - Dysgeusia [None]
